FAERS Safety Report 8584465-X (Version None)
Quarter: 2012Q3

REPORT INFORMATION
  Report Type: 
  Country: None (occurrence: None)
  Receive Date: 20120810
  Receipt Date: 20120806
  Transmission Date: 20120928
  Serious: No
  Sender: FDA-Public Use
  Company Number: US-PFIZER INC-2012191946

PATIENT
  Age: 67 Year
  Sex: Female
  Weight: 64.853 kg

DRUGS (5)
  1. FLECTOR [Suspect]
     Indication: MENISCUS LESION
     Dosage: UNK, 1X/DAY
     Route: 061
     Dates: start: 20120803, end: 20120804
  2. FLECTOR [Suspect]
     Indication: BACK DISORDER
  3. SYNTHROID [Concomitant]
     Indication: HYPOTHYROIDISM
     Dosage: 125 MG, 1X/DAY
  4. COZAAR [Concomitant]
     Indication: HYPERTENSION
     Dosage: 50 MG, 1X/DAY
  5. TOPROL-XL [Concomitant]
     Indication: HYPERTENSION
     Dosage: 25 MG, 1X/DAY

REACTIONS (1)
  - CONTUSION [None]
